FAERS Safety Report 7131389-0 (Version None)
Quarter: 2010Q4

REPORT INFORMATION
  Report Type: 
  Country: None (occurrence: None)
  Receive Date: 20101201
  Receipt Date: 20101118
  Transmission Date: 20110411
  Serious: Yes (Other)
  Sender: FDA-Public Use
  Company Number: US-ELI_LILLY_AND_COMPANY-US201009007023

PATIENT
  Sex: Female

DRUGS (2)
  1. FORTEO [Suspect]
     Indication: OSTEOPOROSIS
     Dosage: 20 UG, DAILY (1/D)
     Route: 065
  2. FORTEO [Suspect]
     Dosage: 20 UG, DAILY (1/D)

REACTIONS (11)
  - ACCIDENTAL OVERDOSE [None]
  - ARTHROPATHY [None]
  - GASTRIC BYPASS [None]
  - INJECTION SITE HAEMATOMA [None]
  - LIGAMENT INJURY [None]
  - LIGAMENTITIS [None]
  - MEDICATION ERROR [None]
  - NEUROPATHY PERIPHERAL [None]
  - PAIN [None]
  - PELVIC FRACTURE [None]
  - SKIN DISORDER [None]
